FAERS Safety Report 6312688-9 (Version None)
Quarter: 2009Q3

REPORT INFORMATION
  Report Type: 
  Country: None (occurrence: None)
  Receive Date: 20090814
  Receipt Date: 20090814
  Transmission Date: 20100115
  Serious: Yes (Life-Threatening)
  Sender: FDA-Public Use
  Company Number: None

PATIENT
  Sex: Male

DRUGS (2)
  1. ZONISAMIDE [Suspect]
     Indication: CEREBROVASCULAR ACCIDENT
     Dosage: 300 MG BID P.O.
     Route: 048
     Dates: start: 20090408
  2. ZONISAMIDE [Suspect]
     Indication: COMPLEX PARTIAL SEIZURES
     Dosage: 300 MG BID P.O.
     Route: 048
     Dates: start: 20090408

REACTIONS (4)
  - ABNORMAL BEHAVIOUR [None]
  - CONDITION AGGRAVATED [None]
  - CONVULSION [None]
  - PRODUCT SUBSTITUTION ISSUE [None]
